FAERS Safety Report 7792986-2 (Version None)
Quarter: 2011Q4

REPORT INFORMATION
  Report Type: 
  Country: None (occurrence: None)
  Receive Date: 20111003
  Receipt Date: 20110929
  Transmission Date: 20120403
  Serious: Yes (Death)
  Sender: FDA-Public Use
  Company Number: PHEH2011US05504

PATIENT
  Sex: Male

DRUGS (6)
  1. VITAMIN D [Concomitant]
  2. VITAMIN B COMPLEX CAP [Concomitant]
  3. POTASSIUM [Concomitant]
     Dosage: 25 MEQ, UNK
  4. FISH OIL [Concomitant]
  5. TASIGNA [Suspect]
     Dosage: 400 MG, BID
     Route: 048
  6. SELENIUM [Concomitant]
     Dosage: 200 UKN, UNK

REACTIONS (1)
  - DEATH [None]
